FAERS Safety Report 22989772 (Version 2)
Quarter: 2025Q4

REPORT INFORMATION
  Report Type: Report from Study
  Country: CA (occurrence: CA)
  Receive Date: 20230927
  Receipt Date: 20251027
  Transmission Date: 20260117
  Serious: Yes (Death, Other)
  Sender: JOHNSON AND JOHNSON
  Company Number: CA-JNJFOC-20230521997

PATIENT
  Age: 70 Year
  Sex: Female

DRUGS (2)
  1. SIMPONI [Suspect]
     Active Substance: GOLIMUMAB
     Indication: Rheumatoid arthritis
     Route: 058
     Dates: start: 20230213
  2. SIMPONI [Suspect]
     Active Substance: GOLIMUMAB
     Route: 058

REACTIONS (3)
  - Death [Fatal]
  - Amyotrophic lateral sclerosis [Unknown]
  - Nasopharyngitis [Unknown]

NARRATIVE: CASE EVENT DATE: 20230501
